FAERS Safety Report 9540213 (Version 1)
Quarter: 2013Q3

REPORT INFORMATION
  Report Type: Spontaneous
  Country: NO (occurrence: NO)
  Receive Date: 20130920
  Receipt Date: 20130920
  Transmission Date: 20140515
  Serious: Yes (Hospitalization, Other)
  Sender: FDA-Public Use
  Company Number: NO-TEVA-430844ISR

PATIENT
  Age: 74 Year
  Sex: Male

DRUGS (9)
  1. LOSARTAN POTASSIUM [Suspect]
  2. WELLBUTRIN RETARD [Interacting]
  3. PERSANTINE RETARD [Interacting]
     Dosage: 400 MILLIGRAM DAILY;
  4. ALBYL-E [Interacting]
     Dosage: 75 MG, UNK
  5. LIPITOR [Interacting]
     Dosage: 40 MG, UNK
  6. OMNIC [Interacting]
  7. PARACET [Interacting]
     Dosage: 4 GRAM DAILY;
  8. TOVIAZ [Interacting]
     Dosage: UNK
  9. EFEXOR DEPOT [Interacting]
     Dosage: PROLONGED-RELEASE CAPSULE

REACTIONS (10)
  - Drug interaction [Unknown]
  - General physical health deterioration [Unknown]
  - Fall [Unknown]
  - Urinary retention [Unknown]
  - Dry mouth [Unknown]
  - Somnolence [Unknown]
  - Benign prostatic hyperplasia [Unknown]
  - Listless [Unknown]
  - Dizziness [Unknown]
  - Fine motor delay [Unknown]
